FAERS Safety Report 23041615 (Version 4)
Quarter: 2023Q4

REPORT INFORMATION
  Report Type: Spontaneous
  Country: CA (occurrence: CA)
  Receive Date: 20231007
  Receipt Date: 20231104
  Transmission Date: 20240110
  Serious: Yes (Hospitalization, Other)
  Sender: FDA-Public Use
  Company Number: CA-CELLTRION INC.-2023CA019348

PATIENT

DRUGS (2)
  1. INFLECTRA [Suspect]
     Active Substance: INFLIXIMAB-DYYB
     Indication: Crohn^s disease
     Dosage: 5 MG/KG, WEEKS 0,2,6 THEN EVERY 8 WEEKS
     Route: 042
     Dates: start: 20230926
  2. PREDNISONE [Concomitant]
     Active Substance: PREDNISONE
     Dosage: UNK

REACTIONS (13)
  - Appendix disorder [Recovered/Resolved]
  - Blood pressure systolic increased [Recovering/Resolving]
  - Pain [Not Recovered/Not Resolved]
  - Abdominal pain [Not Recovered/Not Resolved]
  - Presyncope [Unknown]
  - Palpitations [Recovering/Resolving]
  - Dizziness [Not Recovered/Not Resolved]
  - Nausea [Not Recovered/Not Resolved]
  - Crying [Unknown]
  - Inflammation [Unknown]
  - Mass [Unknown]
  - Reflux gastritis [Recovered/Resolved]
  - Flank pain [Unknown]

NARRATIVE: CASE EVENT DATE: 20230101
